FAERS Safety Report 24882390 (Version 3)
Quarter: 2025Q1

REPORT INFORMATION
  Report Type: Spontaneous
  Country: JP (occurrence: JP)
  Receive Date: 20250124
  Receipt Date: 20250324
  Transmission Date: 20250408
  Serious: Yes (Death, Other)
  Sender: TAKEDA
  Company Number: JP-TAKEDA-2024TJP017521

PATIENT
  Age: 4 Decade
  Sex: Male

DRUGS (2)
  1. FRUZAQLA [Suspect]
     Active Substance: FRUQUINTINIB
     Indication: Colorectal cancer
  2. FRUZAQLA [Suspect]
     Active Substance: FRUQUINTINIB

REACTIONS (5)
  - Colorectal cancer [Fatal]
  - Ureteric compression [Unknown]
  - Intestinal obstruction [Not Recovered/Not Resolved]
  - Skin disorder [Recovered/Resolved]
  - Back pain [Recovered/Resolved]

NARRATIVE: CASE EVENT DATE: 20241206
